FAERS Safety Report 18154469 (Version 1)
Quarter: 2020Q3

REPORT INFORMATION
  Report Type: Other
  Country: CA (occurrence: CA)
  Receive Date: 20200817
  Receipt Date: 20200817
  Transmission Date: 20201103
  Serious: Yes (Hospitalization)
  Sender: FDA-Public Use
  Company Number: CA-CELLTRION INC.-2020CA025182

PATIENT

DRUGS (1)
  1. TRASTUZUMAB (UNKNOWN) [Suspect]
     Active Substance: TRASTUZUMAB
     Indication: HER2 POSITIVE BREAST CANCER
     Dosage: UNK
     Route: 065

REACTIONS (3)
  - Cardiac failure chronic [Unknown]
  - Mitral valve incompetence [Unknown]
  - Acute pulmonary oedema [Unknown]
